FAERS Safety Report 8572228 (Version 4)
Quarter: 2013Q1

REPORT INFORMATION
  Report Type: Spontaneous
  Country: US (occurrence: US)
  Receive Date: 20120521
  Receipt Date: 20130327
  Transmission Date: 20140127
  Serious: No
  Sender: FDA-Public Use
  Company Number: US-ASTRAZENECA-2012SE30763

PATIENT
  Age: 54 Year
  Sex: Male

DRUGS (7)
  1. SEROQUEL [Suspect]
     Indication: SLEEP DISORDER
     Route: 048
     Dates: start: 2006
  2. SEROQUEL [Suspect]
     Indication: POST-TRAUMATIC STRESS DISORDER
     Route: 048
     Dates: start: 2006
  3. SEROQUEL [Suspect]
     Indication: DEPRESSION
     Route: 048
     Dates: start: 2006
  4. SEROQUEL [Suspect]
     Indication: SLEEP DISORDER
     Route: 048
  5. SEROQUEL [Suspect]
     Indication: POST-TRAUMATIC STRESS DISORDER
     Route: 048
  6. SEROQUEL [Suspect]
     Indication: DEPRESSION
     Route: 048
  7. TRAZODONE [Suspect]
     Route: 065

REACTIONS (9)
  - Insomnia [Unknown]
  - Malaise [Unknown]
  - Depression [Unknown]
  - Back pain [Unknown]
  - Aphagia [Unknown]
  - Adverse event [Unknown]
  - Irritability [Unknown]
  - Off label use [Unknown]
  - Drug dose omission [Unknown]
